FAERS Safety Report 12252919 (Version 2)
Quarter: 2016Q2

REPORT INFORMATION
  Report Type: Report from Study
  Country: CA (occurrence: CA)
  Receive Date: 20160411
  Receipt Date: 20160418
  Transmission Date: 20160815
  Serious: Yes (Hospitalization, Other)
  Sender: FDA-Public Use
  Company Number: PHHY2014CA017313

PATIENT
  Age: 67 Year
  Sex: Female
  Weight: 84 kg

DRUGS (4)
  1. SANDOSTATIN LAR DEPOT [Suspect]
     Active Substance: OCTREOTIDE ACETATE
     Dosage: 20 MG, QMO (EVERY 4 WEEKS)
     Route: 030
     Dates: start: 20140514
  2. SANDOSTATIN LAR DEPOT [Suspect]
     Active Substance: OCTREOTIDE ACETATE
     Indication: CARCINOID TUMOUR
     Dosage: 20 MG, QMO (EVERY 4 WEEKS)
     Route: 030
     Dates: start: 20140113
  3. SANDOSTATIN LAR DEPOT [Suspect]
     Active Substance: OCTREOTIDE ACETATE
     Dosage: 30 MG, QMO (ONCE A MONTH)
     Route: 030
  4. VACCINE ANTIGRIPAL [Concomitant]
     Active Substance: INFLUENZA VIRUS VACCINE
     Indication: PRODUCT USED FOR UNKNOWN INDICATION
     Route: 065
     Dates: start: 20141120

REACTIONS (25)
  - Scab [Unknown]
  - Dysgeusia [Recovered/Resolved]
  - Hyperhidrosis [Recovered/Resolved]
  - Nasopharyngitis [Unknown]
  - Hypersensitivity [Recovered/Resolved]
  - Cellulitis [Recovered/Resolved]
  - Blood pressure increased [Unknown]
  - Tongue disorder [Recovered/Resolved]
  - Dizziness [Unknown]
  - Hypermetropia [Unknown]
  - Blindness unilateral [Unknown]
  - Hypertension [Unknown]
  - Skin papilloma [Unknown]
  - Eye infection [Unknown]
  - Diabetes mellitus inadequate control [Unknown]
  - Skin lesion [Unknown]
  - Rhinorrhoea [Unknown]
  - Headache [Unknown]
  - Weight decreased [Unknown]
  - Rash [Unknown]
  - Blood pressure diastolic decreased [Unknown]
  - Sneezing [Unknown]
  - Injection site pain [Recovered/Resolved]
  - Nausea [Recovered/Resolved]
  - Heart rate decreased [Unknown]

NARRATIVE: CASE EVENT DATE: 20140218
